FAERS Safety Report 24417926 (Version 1)
Quarter: 2024Q4

REPORT INFORMATION
  Report Type: Spontaneous
  Country: US (occurrence: US)
  Receive Date: 20241009
  Receipt Date: 20241009
  Transmission Date: 20250115
  Serious: Yes (Life-Threatening, Hospitalization, Other)
  Sender: DR REDDYS
  Company Number: None

PATIENT
  Age: 58 Year
  Sex: Male

DRUGS (8)
  1. CARVEDILOL [Suspect]
     Active Substance: CARVEDILOL
     Indication: Blood pressure increased
  2. CARVEDILOL [Suspect]
     Active Substance: CARVEDILOL
     Indication: Hypertensive urgency
  3. NIFEDIPINE [Suspect]
     Active Substance: NIFEDIPINE
     Indication: Hypertensive urgency
  4. NIFEDIPINE [Suspect]
     Active Substance: NIFEDIPINE
     Indication: Blood pressure increased
  5. PIPERACILLIN AND TAZOBACTAM [Concomitant]
     Active Substance: PIPERACILLIN SODIUM\TAZOBACTAM SODIUM
     Indication: Antibiotic therapy
  6. VANCOMYCIN [Concomitant]
     Active Substance: VANCOMYCIN
     Indication: Antibiotic therapy
  7. INSULIN NOS [Concomitant]
     Active Substance: INSULIN NOS
     Indication: Blood glucose increased
     Dosage: SLIDING SCALE
  8. INSULIN NOS [Concomitant]
     Active Substance: INSULIN NOS
     Indication: Type 2 diabetes mellitus

REACTIONS (5)
  - Hypothermia [Recovering/Resolving]
  - Shock [Recovering/Resolving]
  - Hypoglycaemia [Recovering/Resolving]
  - Hypotension [Recovering/Resolving]
  - Cardioactive drug level increased [Recovering/Resolving]
